FAERS Safety Report 9217605 (Version 1)
Quarter: 2013Q2

REPORT INFORMATION
  Report Type: Report from Study
  Country: DE (occurrence: DE)
  Receive Date: 20130408
  Receipt Date: 20130408
  Transmission Date: 20140414
  Serious: Yes (Hospitalization)
  Sender: FDA-Public Use
  Company Number: DE-ROCHE-761708

PATIENT
  Age: 71 Year
  Sex: Male

DRUGS (9)
  1. RITUXIMAB [Suspect]
     Indication: RHEUMATOID ARTHRITIS
     Dosage: LAST ADMINISTRATION PRIOR TO THE EVENT ON 25-APR-2009
     Route: 042
  2. RITUXIMAB [Suspect]
     Route: 042
  3. RITUXIMAB [Suspect]
     Route: 042
  4. SULFASALAZINE [Suspect]
     Indication: RHEUMATOID ARTHRITIS
     Route: 065
     Dates: start: 200603, end: 200709
  5. SULFASALAZINE [Suspect]
     Route: 065
  6. LEFLUNOMIDE [Concomitant]
     Indication: PRODUCT USED FOR UNKNOWN INDICATION
     Route: 065
     Dates: start: 200405, end: 200510
  7. PREDNISOLON [Concomitant]
     Indication: PRODUCT USED FOR UNKNOWN INDICATION
     Route: 065
  8. IBUPROFEN [Concomitant]
     Indication: PRODUCT USED FOR UNKNOWN INDICATION
  9. ADALIMUMAB [Concomitant]
     Indication: PRODUCT USED FOR UNKNOWN INDICATION
     Route: 065
     Dates: start: 200506, end: 200510

REACTIONS (1)
  - Bladder cancer [Recovered/Resolved]
